FAERS Safety Report 20550042 (Version 1)
Quarter: 2022Q1

REPORT INFORMATION
  Report Type: Spontaneous
  Country: GB (occurrence: GB)
  Receive Date: 20220304
  Receipt Date: 20220304
  Transmission Date: 20220423
  Serious: Yes (Other)
  Sender: FDA-Public Use
  Company Number: GB-MHRA-TPP13014894C9346060YC1645007654299

PATIENT
  Age: 65 Year
  Sex: Female
  Weight: 62 kg

DRUGS (6)
  1. METRONIDAZOLE [Suspect]
     Active Substance: METRONIDAZOLE
     Indication: Product used for unknown indication
     Dosage: UNK
     Route: 065
     Dates: start: 20220209
  2. CODEINE PHOSPHATE [Concomitant]
     Active Substance: CODEINE PHOSPHATE
     Indication: Product used for unknown indication
     Dosage: ONE OR TWO TO BE TAKEN UPTO FOUR TIMES DAILY
     Route: 065
     Dates: start: 20220209, end: 20220216
  3. COSMOCOL [Concomitant]
     Indication: Product used for unknown indication
     Dosage: TWO EACH DAY WHILST LAXIDO UNAVAILABLE
     Route: 065
     Dates: start: 20220215
  4. POLYETHYLENE GLYCOL 3350\POTASSIUM CHLORIDE\SODIUM BICARBONATE\SODIUM [Concomitant]
     Active Substance: POLYETHYLENE GLYCOL 3350\POTASSIUM CHLORIDE\SODIUM BICARBONATE\SODIUM CHLORIDE
     Indication: Product used for unknown indication
     Dosage: 2 DOSAGE FORM
     Route: 065
     Dates: start: 20210303
  5. OMEPRAZOLE [Concomitant]
     Active Substance: OMEPRAZOLE
     Indication: Product used for unknown indication
     Dosage: 2 DOSAGE FORM
     Route: 065
     Dates: start: 20210303
  6. SIMVASTATIN [Concomitant]
     Active Substance: SIMVASTATIN
     Indication: Product used for unknown indication
     Dosage: 1 DOSAGE FORM (NIGHTLY)
     Route: 065
     Dates: start: 20210126

REACTIONS (2)
  - Urticaria [Unknown]
  - Swelling [Unknown]

NARRATIVE: CASE EVENT DATE: 20220216
